FAERS Safety Report 18126220 (Version 1)
Quarter: 2020Q3

REPORT INFORMATION
  Report Type: Spontaneous
  Country: IT (occurrence: IT)
  Receive Date: 20200808
  Receipt Date: 20200808
  Transmission Date: 20201103
  Serious: Yes (Other)
  Sender: FDA-Public Use
  Company Number: IT-AUROBINDO-AUR-APL-2020-037976

PATIENT
  Sex: Female

DRUGS (2)
  1. TOPIRAMATE. [Suspect]
     Active Substance: TOPIRAMATE
     Dosage: 100 MILLIGRAM, TWO TIMES A DAY
     Route: 065
  2. TOPIRAMATE. [Suspect]
     Active Substance: TOPIRAMATE
     Indication: CLUSTER HEADACHE
     Dosage: UNK UNK, TWO TIMES A DAY (UP TO (DOSE OF 100 MG)
     Route: 065

REACTIONS (4)
  - Nephrolithiasis [Unknown]
  - Acute kidney injury [Unknown]
  - Renal colic [Unknown]
  - Hydronephrosis [Unknown]
